FAERS Safety Report 23113835 (Version 1)
Quarter: 2023Q4

REPORT INFORMATION
  Report Type: Other
  Country: CN (occurrence: None)
  Receive Date: 20231027
  Receipt Date: 20231027
  Transmission Date: 20240110
  Serious: Yes (Other)
  Sender: FDA-Public Use
  Company Number: CN-ROCHE-3443238

PATIENT
  Age: 20 Year
  Sex: Female

DRUGS (9)
  1. BEVACIZUMAB [Suspect]
     Active Substance: BEVACIZUMAB
     Indication: Glioblastoma
     Dosage: FOR ONE CYCLE,
     Route: 065
  2. BEVACIZUMAB [Suspect]
     Active Substance: BEVACIZUMAB
     Dosage: DAY 1
     Route: 065
     Dates: start: 201907, end: 201908
  3. BEVACIZUMAB [Suspect]
     Active Substance: BEVACIZUMAB
     Route: 065
     Dates: start: 201911
  4. TEMOZOLOMIDE [Suspect]
     Active Substance: TEMOZOLOMIDE
     Indication: Glioblastoma
     Dosage: BODY SURFACE AREA, X 42 DAY
     Route: 048
  5. TEMOZOLOMIDE [Suspect]
     Active Substance: TEMOZOLOMIDE
     Dosage: FOR 5 CONSECUTIVE DAYS, 1 CYCLE EVERY 28 DAYS
     Route: 048
  6. TEMOZOLOMIDE [Suspect]
     Active Substance: TEMOZOLOMIDE
     Dosage: TWO COURSES, DAY 1-7, EVERY OTHER WEEK WERE GIVEN
     Route: 048
  7. IRINOTECAN [Suspect]
     Active Substance: IRINOTECAN
     Indication: Glioblastoma
     Dosage: DAY 2
     Route: 065
     Dates: start: 201907, end: 201908
  8. CATEQUENTINIB [Suspect]
     Active Substance: CATEQUENTINIB
     Indication: Glioblastoma
     Dosage: X 14 DAYS, WITH EVERY 21 DAYS CONSIDERED TO BE A CYCLE
     Route: 065
  9. CATEQUENTINIB [Suspect]
     Active Substance: CATEQUENTINIB
     Route: 065
     Dates: start: 201911

REACTIONS (4)
  - Disease progression [Unknown]
  - Myelosuppression [Unknown]
  - Decreased appetite [Unknown]
  - Fatigue [Unknown]
